FAERS Safety Report 15323480 (Version 2)
Quarter: 2018Q3

REPORT INFORMATION
  Report Type: Spontaneous
  Country: US (occurrence: US)
  Receive Date: 20180827
  Receipt Date: 20180827
  Transmission Date: 20181010
  Serious: Yes (Death, Other)
  Sender: FDA-Public Use
  Company Number: PHHY2018US079311

PATIENT
  Age: 61 Year
  Sex: Female

DRUGS (14)
  1. CELLCEPT [Suspect]
     Active Substance: MYCOPHENOLATE MOFETIL\MYCOPHENOLATE MOFETIL HYDROCHLORIDE
     Indication: LIVER TRANSPLANT
     Route: 065
  2. GANCICLOVIR. [Suspect]
     Active Substance: GANCICLOVIR
     Indication: ANGIOCENTRIC LYMPHOMA
     Dosage: 5 MG/KG, BID
     Route: 042
  3. NEORAL [Suspect]
     Active Substance: CYCLOSPORINE
     Indication: IMMUNOSUPPRESSANT DRUG THERAPY
  4. RITUXIMAB. [Suspect]
     Active Substance: RITUXIMAB
     Indication: EPSTEIN-BARR VIRUS ASSOCIATED LYMPHOMA
  5. CELLCEPT [Suspect]
     Active Substance: MYCOPHENOLATE MOFETIL\MYCOPHENOLATE MOFETIL HYDROCHLORIDE
     Indication: IMMUNOSUPPRESSANT DRUG THERAPY
  6. GANCICLOVIR. [Suspect]
     Active Substance: GANCICLOVIR
     Indication: EPSTEIN-BARR VIRUS ASSOCIATED LYMPHOMA
  7. ZIDOVUDINE. [Suspect]
     Active Substance: ZIDOVUDINE
     Indication: ANGIOCENTRIC LYMPHOMA
     Dosage: 1500 MG, BID
     Route: 042
  8. ZIDOVUDINE. [Suspect]
     Active Substance: ZIDOVUDINE
     Indication: EPSTEIN-BARR VIRUS ASSOCIATED LYMPHOMA
     Dosage: 300 MG, BID
     Route: 048
  9. DEXAMETHASONE. [Suspect]
     Active Substance: DEXAMETHASONE
     Indication: EPSTEIN-BARR VIRUS ASSOCIATED LYMPHOMA
  10. NEORAL [Suspect]
     Active Substance: CYCLOSPORINE
     Indication: LIVER TRANSPLANT
     Route: 065
  11. DEXAMETHASONE. [Suspect]
     Active Substance: DEXAMETHASONE
     Indication: ANGIOCENTRIC LYMPHOMA
     Dosage: 10 MG, BID
     Route: 042
  12. RITUXIMAB. [Suspect]
     Active Substance: RITUXIMAB
     Indication: ANGIOCENTRIC LYMPHOMA
     Dosage: 375 MG/M2, UNK (FOUR DOSES WERE ADMINISTERED ON DAYS 1, 8, 15 AND 22)
     Route: 065
  13. PREDNISONE. [Suspect]
     Active Substance: PREDNISONE
     Indication: LIVER TRANSPLANT
     Route: 065
  14. PREDNISONE. [Suspect]
     Active Substance: PREDNISONE
     Indication: IMMUNOSUPPRESSANT DRUG THERAPY

REACTIONS (5)
  - Malignant neoplasm progression [Unknown]
  - Septic shock [Fatal]
  - Product use in unapproved indication [Unknown]
  - Angiocentric lymphoma [Unknown]
  - Epstein-Barr virus associated lymphoma [Unknown]
